FAERS Safety Report 15717764 (Version 1)
Quarter: 2018Q4

REPORT INFORMATION
  Report Type: Spontaneous
  Country: US (occurrence: US)
  Receive Date: 20181129
  Receipt Date: 20181129
  Transmission Date: 20190205
  Serious: No
  Sender: FDA-Public Use
  Company Number: None

PATIENT
  Age: 60 Year
  Sex: Male
  Weight: 116.39 kg

DRUGS (1)
  1. SEVOFLURANE. [Suspect]
     Active Substance: SEVOFLURANE
     Indication: RECTAL ABSCESS
     Dates: start: 20180621, end: 20180621

REACTIONS (3)
  - Hypotension [None]
  - Cardiac arrest [None]
  - Cyanosis [None]

NARRATIVE: CASE EVENT DATE: 20180621
